FAERS Safety Report 16437372 (Version 4)
Quarter: 2021Q2

REPORT INFORMATION
  Report Type: Report from Study
  Country: CZ (occurrence: CZ)
  Receive Date: 20190615
  Receipt Date: 20210430
  Transmission Date: 20210716
  Serious: Yes (Hospitalization)
  Sender: FDA-Public Use
  Company Number: CZ-ROCHE-2226358

PATIENT
  Age: 53 Year
  Sex: Female
  Weight: 64 kg

DRUGS (65)
  1. DOXORUBICIN [Suspect]
     Active Substance: DOXORUBICIN
     Indication: DIFFUSE LARGE B-CELL LYMPHOMA
     Dosage: DATE OF MOST RECENT DOSE OF DOXORUBICIN PRIOR TO FIRST OCCURRENCE OF VOMITING ONSET 28/NOV/2018 (85.
     Route: 042
     Dates: start: 20181128
  2. FRAXIPARINE [Concomitant]
     Active Substance: NADROPARIN CALCIUM
     Route: 058
     Dates: start: 20181116, end: 20190430
  3. DEGAN [Concomitant]
     Active Substance: METOCLOPRAMIDE HYDROCHLORIDE
     Route: 042
     Dates: start: 20181206, end: 201902
  4. TRANSTEC [Concomitant]
     Active Substance: BUPRENORPHINE
     Indication: PAIN
     Route: 062
     Dates: start: 20181128, end: 20181222
  5. NEUROL (CZECH REPUBLIC) [Concomitant]
     Dosage: PREVENTION OF ANXIETY
     Route: 048
     Dates: start: 20181204, end: 20190403
  6. DEXAMED (CZECH REPUBLIC) [Concomitant]
     Route: 037
     Dates: start: 20181203, end: 20181203
  7. PLACEBO [Suspect]
     Active Substance: UNSPECIFIED INGREDIENT
     Indication: DIFFUSE LARGE B-CELL LYMPHOMA
     Dosage: DATE OF MOST RECENT DOSE OF PLACEBO PRIOR TO FIRST OCCURRENCE OF VOMITING ONSET ON 28/NOV/2018?DATE
     Route: 042
     Dates: start: 20181128
  8. DEGAN [Concomitant]
     Active Substance: METOCLOPRAMIDE HYDROCHLORIDE
     Route: 042
     Dates: start: 20181210, end: 20181210
  9. ESPUMISAN [Concomitant]
     Active Substance: DIMETHICONE
     Route: 048
     Dates: start: 20181202, end: 20181202
  10. ZARZIO [Concomitant]
     Active Substance: FILGRASTIM
     Dosage: PREVENTION OF NEUTROPENIA
     Route: 058
     Dates: start: 20181210, end: 20181211
  11. KYTRIL [Concomitant]
     Active Substance: GRANISETRON HYDROCHLORIDE
     Dates: start: 20181128, end: 20181130
  12. HELICID [Concomitant]
     Active Substance: OMEPRAZOLE
     Route: 048
     Dates: start: 20190102, end: 20190424
  13. AKYNZEO [Concomitant]
     Active Substance: NETUPITANT\PALONOSETRON HYDROCHLORIDE
     Indication: PREMEDICATION
     Dosage: PREMEDICATION OF RITUXIMAB
     Route: 048
     Dates: start: 20181219, end: 20181219
  14. FENTALIS [Concomitant]
     Active Substance: FENTANYL
     Indication: PAIN
     Dosage: 12.5 OTHER
     Route: 062
     Dates: start: 20181223, end: 20190108
  15. KALNORMIN [Concomitant]
     Active Substance: POTASSIUM CHLORIDE
     Dosage: PREVENTION OF HYPOKALEMIA
     Route: 048
     Dates: start: 20181213, end: 20181215
  16. DEXAMED (CZECH REPUBLIC) [Concomitant]
     Indication: NAUSEA
     Route: 042
     Dates: start: 20181210, end: 20181210
  17. ESTROFEM [Concomitant]
     Indication: MENOPAUSAL DISORDER
     Route: 048
     Dates: start: 20181116, end: 20181127
  18. NOLPAZA [Concomitant]
     Active Substance: PANTOPRAZOLE SODIUM
     Indication: GASTROOESOPHAGEAL REFLUX DISEASE
     Route: 048
     Dates: start: 20181121, end: 20181209
  19. VIGANTOL [Concomitant]
     Indication: VITAMIN D DEFICIENCY
     Route: 048
     Dates: start: 20181129
  20. ZALDIAR [Concomitant]
     Active Substance: ACETAMINOPHEN\TRAMADOL HYDROCHLORIDE
     Indication: PAIN
     Route: 048
     Dates: start: 20181125, end: 20181125
  21. ALMIRAL [Concomitant]
     Active Substance: DICLOFENAC SODIUM
     Indication: PAIN
     Route: 042
     Dates: start: 20181127, end: 20181127
  22. DORMICUM [Concomitant]
     Indication: INSOMNIA
     Route: 048
     Dates: start: 20181122, end: 20181122
  23. ZYRTEC [Concomitant]
     Active Substance: CETIRIZINE HYDROCHLORIDE
     Indication: PREMEDICATION
     Dosage: PREMEDICATION OF RITUXIMAB
     Route: 048
     Dates: start: 20181128, end: 20181128
  24. SOLU?MEDROL [Concomitant]
     Active Substance: METHYLPREDNISOLONE SODIUM SUCCINATE
     Dates: start: 20181122, end: 20181126
  25. MILURIT [Concomitant]
     Active Substance: ALLOPURINOL
     Route: 048
     Dates: start: 20181128, end: 201812
  26. NOLPAZA [Concomitant]
     Active Substance: PANTOPRAZOLE SODIUM
     Route: 048
     Dates: start: 20181210, end: 20181224
  27. CYTOSAR [Concomitant]
     Active Substance: CYTARABINE
     Indication: PROPHYLAXIS
     Route: 037
     Dates: start: 20181203, end: 20181203
  28. ZARZIO [Concomitant]
     Active Substance: FILGRASTIM
     Dosage: PREVENTION OF NEUTROPENIA
     Route: 058
     Dates: start: 20181226, end: 20181229
  29. HELICID [Concomitant]
     Active Substance: OMEPRAZOLE
     Indication: GASTROOESOPHAGEAL REFLUX DISEASE
     Route: 048
     Dates: start: 20181116, end: 20181120
  30. BISACODYLUM [Concomitant]
     Indication: CONSTIPATION
     Route: 048
     Dates: start: 20181226, end: 20181226
  31. KALNORMIN [Concomitant]
     Active Substance: POTASSIUM CHLORIDE
     Dosage: PREVENTION OF HYPOKALEMIA
     Route: 048
     Dates: start: 20181216, end: 20181230
  32. POLATUZUMAB VEDOTIN. [Suspect]
     Active Substance: POLATUZUMAB VEDOTIN
     Indication: DIFFUSE LARGE B-CELL LYMPHOMA
     Dosage: DATE OF MOST RECENT DOSE OF POLATUZUMAB VEDOTIN PRIOR TO FIRST OCCURRENCE OF VOMITING ONSET 28/NOV/2
     Route: 042
     Dates: start: 20181128
  33. RITUXIMAB. [Suspect]
     Active Substance: RITUXIMAB
     Indication: DIFFUSE LARGE B-CELL LYMPHOMA
     Dosage: DATE OF MOST RECENT DOSE OF RITUXIMAB PRIOR TO FIRST OCCURRENCE OF VOMITING ONSET 28/NOV/2018 (641.2
     Route: 041
     Dates: start: 20181128
  34. MIFLONID [Concomitant]
     Active Substance: BUDESONIDE
     Indication: ASTHMA
     Dates: start: 2017
  35. METHOTREXATE. [Concomitant]
     Active Substance: METHOTREXATE
     Route: 037
     Dates: start: 20181220, end: 20181220
  36. KINITO [Concomitant]
     Route: 048
     Dates: start: 20181116, end: 20181122
  37. ALGIFEN (CZECH REPUBLIC) [Concomitant]
     Indication: PAIN
     Route: 048
     Dates: start: 201810, end: 20181121
  38. LACTULOSA [Concomitant]
     Active Substance: LACTULOSE
     Indication: CONSTIPATION
     Route: 048
     Dates: start: 20181129, end: 20190108
  39. RINGERFUNDIN [Concomitant]
     Active Substance: CALCIUM CHLORIDE\MAGNESIUM CHLORIDE\MALIC ACID\POTASSIUM CHLORIDE\SODIUM ACETATE\SODIUM CHLORIDE
     Route: 042
     Dates: start: 20181121, end: 20181204
  40. CYCLOPHOSPHAMIDE. [Suspect]
     Active Substance: CYCLOPHOSPHAMIDE
     Indication: DIFFUSE LARGE B-CELL LYMPHOMA
     Dosage: DATE OF MOST RECENT DOSE OF CYCLOPHOSPHAMIDE PRIOR TO FIRST OCCURRENCE OF VOMITING ONSET ON 28/NOV/2
     Route: 042
     Dates: start: 20181128
  41. NOLPAZA [Concomitant]
     Active Substance: PANTOPRAZOLE SODIUM
     Route: 048
     Dates: start: 20181228
  42. MONOSODIUM PHOSPHATE [Concomitant]
     Active Substance: SODIUM PHOSPHATE, MONOBASIC
     Route: 042
     Dates: start: 20181125, end: 20181126
  43. ZYRTEC [Concomitant]
     Active Substance: CETIRIZINE HYDROCHLORIDE
     Dosage: PREMEDICATION OF RITUXIMAB
     Route: 048
     Dates: start: 20190103, end: 20190103
  44. PARALEN [PARACETAMOL] [Concomitant]
     Dosage: PREMEDICATION OF RITUXIMAB
     Route: 048
     Dates: start: 20190103, end: 20190103
  45. HYDROCORTISONE. [Concomitant]
     Active Substance: HYDROCORTISONE
     Route: 037
     Dates: start: 20181220, end: 20181220
  46. PREDNISONE. [Suspect]
     Active Substance: PREDNISONE
     Indication: DIFFUSE LARGE B-CELL LYMPHOMA
     Dosage: DATE OF MOST RECENT DOSE OF PREDNISONE PRIOR TO FIRST OCCURRENCE OF VOMITING ONSET ON 02/DEC/2018 (1
     Route: 042
     Dates: start: 20181128
  47. MILURIT [Concomitant]
     Active Substance: ALLOPURINOL
     Indication: PROPHYLAXIS
     Route: 048
     Dates: start: 20181130, end: 20181205
  48. NOLPAZA [Concomitant]
     Active Substance: PANTOPRAZOLE SODIUM
     Route: 048
     Dates: start: 20181227, end: 20181227
  49. METHOTREXATE. [Concomitant]
     Active Substance: METHOTREXATE
     Indication: PROPHYLAXIS
     Route: 037
     Dates: start: 20181203, end: 20181203
  50. ZARZIO [Concomitant]
     Active Substance: FILGRASTIM
     Route: 058
     Dates: start: 20181207, end: 20181208
  51. ZALDIAR [Concomitant]
     Active Substance: ACETAMINOPHEN\TRAMADOL HYDROCHLORIDE
     Route: 048
     Dates: start: 20181128, end: 20181128
  52. ZYRTEC [Concomitant]
     Active Substance: CETIRIZINE HYDROCHLORIDE
     Dosage: PREMEDICATION OF RITUXIMAB
     Route: 048
     Dates: start: 20181219, end: 20181219
  53. AKYNZEO [Concomitant]
     Active Substance: NETUPITANT\PALONOSETRON HYDROCHLORIDE
     Dosage: PREMEDICATION OF RITUXIMAB
     Route: 048
     Dates: start: 20190103, end: 20190103
  54. NEUROL (CZECH REPUBLIC) [Concomitant]
     Dosage: PREVENTION OF ANXIETY
     Route: 048
     Dates: start: 20181128, end: 20181202
  55. KALNORMIN [Concomitant]
     Active Substance: POTASSIUM CHLORIDE
     Dosage: PREVENTION OF HYPOKALEMIA
     Route: 048
     Dates: start: 20181210, end: 20181212
  56. RINGERFUNDIN [Concomitant]
     Active Substance: CALCIUM CHLORIDE\MAGNESIUM CHLORIDE\MALIC ACID\POTASSIUM CHLORIDE\SODIUM ACETATE\SODIUM CHLORIDE
     Route: 042
     Dates: start: 20181205, end: 20181206
  57. MILURIT [Concomitant]
     Active Substance: ALLOPURINOL
     Route: 048
     Dates: start: 20181128, end: 20181129
  58. MILURIT [Concomitant]
     Active Substance: ALLOPURINOL
     Route: 048
     Dates: start: 20181122, end: 20181127
  59. DEGAN [Concomitant]
     Active Substance: METOCLOPRAMIDE HYDROCHLORIDE
     Indication: NAUSEA
     Dosage: PROPHYLAXIS OF NAUSEA
     Route: 042
     Dates: start: 20181122, end: 20181201
  60. CYTOSAR [Concomitant]
     Active Substance: CYTARABINE
     Route: 037
     Dates: start: 20181220, end: 20181220
  61. NOVALGIN (CZECH REPUBLIC) [Concomitant]
     Indication: PAIN
     Route: 042
     Dates: start: 20181121, end: 20181128
  62. ZALDIAR [Concomitant]
     Active Substance: ACETAMINOPHEN\TRAMADOL HYDROCHLORIDE
     Route: 048
     Dates: start: 20181126, end: 20181126
  63. DIPIDOLOR [Concomitant]
     Active Substance: PIRITRAMIDE
     Indication: PAIN
     Route: 060
     Dates: start: 20181128, end: 20181128
  64. PARALEN [PARACETAMOL] [Concomitant]
     Indication: PREMEDICATION
     Dosage: PREMEDICATION OF RITUXIMAB
     Route: 048
     Dates: start: 20181128, end: 20181128
  65. PARALEN [PARACETAMOL] [Concomitant]
     Route: 048
     Dates: start: 20181219, end: 20181219

REACTIONS (2)
  - Vomiting [Recovered/Resolved]
  - Vomiting [Recovered/Resolved]

NARRATIVE: CASE EVENT DATE: 20181204
